FAERS Safety Report 7238466-4 (Version None)
Quarter: 2011Q1

REPORT INFORMATION
  Report Type: 
  Country: None (occurrence: None)
  Receive Date: 20110119
  Receipt Date: 20110119
  Transmission Date: 20110831
  Serious: Yes (Other)
  Sender: FDA-Public Use
  Company Number: None

PATIENT
  Age: 46 Year
  Sex: Female
  Weight: 58.9676 kg

DRUGS (3)
  1. CYMBALTA [Suspect]
     Dosage: 30MG WITH 60MG ONCE DAILY PO
     Route: 048
     Dates: start: 20101004, end: 20101217
  2. DEPAKOTE [Concomitant]
  3. LAMICTAL [Suspect]
     Indication: BIPOLAR II DISORDER
     Dosage: 200MG ONE BID PO
     Route: 048
     Dates: start: 20101004, end: 20101217

REACTIONS (5)
  - DISTURBANCE IN ATTENTION [None]
  - INSOMNIA [None]
  - DISSOCIATION [None]
  - DIZZINESS [None]
  - PARAESTHESIA [None]
